FAERS Safety Report 19938439 (Version 4)
Quarter: 2022Q1

REPORT INFORMATION
  Report Type: Report from Study
  Country: IT (occurrence: IT)
  Receive Date: 20211011
  Receipt Date: 20220315
  Transmission Date: 20220423
  Serious: Yes (Hospitalization, Other)
  Sender: FDA-Public Use
  Company Number: IT-CELLTRION INC.-2021IT013600

PATIENT

DRUGS (10)
  1. TRASTUZUMAB [Suspect]
     Active Substance: TRASTUZUMAB
     Indication: Breast cancer
     Dosage: 348 MG, EVERY 3 WEEKS, DATE OF MOST RECENT DOSE OF TRASTUZUMAB (348 MG) PRIOR TO SAE ONSET: 16/JUL/2
     Route: 041
     Dates: start: 20210409
  2. TRASTUZUMAB [Suspect]
     Active Substance: TRASTUZUMAB
     Dosage: EVERY 3 WEEKS, DATE OF MOST RECENT DOSE OF TRASTUZUMAB (348 MG) PRIOR TO SAE ONSET: 16/JUL/2021 6 MG
     Route: 041
  3. PACLITAXEL [Suspect]
     Active Substance: PACLITAXEL
     Indication: Breast cancer
     Dosage: 130 MG (DATE OF MOST RECENT DOSE OF PACLITAXEL (130 MG) PRIOR TO SAE ONSET: 23JUL/2021)
     Route: 042
     Dates: start: 20210409, end: 20210819
  4. ATEZOLIZUMAB [Suspect]
     Active Substance: ATEZOLIZUMAB
     Indication: Breast cancer
     Dosage: 1200MG, EVERY 3 WEEKS, DATE OF MOST RECENT DOSE OF ATEZOLIZUMAB(1200 MG) PRIOR TO SAE ONSET: 16/JUL/
     Route: 041
     Dates: start: 20210409, end: 20210819
  5. CARBOPLATIN [Suspect]
     Active Substance: CARBOPLATIN
     Indication: Breast cancer
     Dosage: 180 MG (DATE OF MOST RECENT DOSE OF CARBOPLATIN (180 MG) PRIOR TO SAE ONSET: 23JUL/2021)
     Route: 042
     Dates: start: 20210409, end: 20210819
  6. ACETAMINOPHEN\CODEINE PHOSPHATE [Concomitant]
     Active Substance: ACETAMINOPHEN\CODEINE PHOSPHATE
     Indication: Pain
     Dosage: UNK
     Dates: start: 20210330, end: 20210809
  7. ACETAMINOPHEN [Concomitant]
     Active Substance: ACETAMINOPHEN
     Indication: Pain
     Dosage: UNK
     Dates: start: 20210330, end: 20210809
  8. PERTUZUMAB [Concomitant]
     Active Substance: PERTUZUMAB
     Indication: Breast cancer
     Dosage: 420 MG, EVERY 3 WEEKS, DATE OF MOST RECENT DOSE OF PERTUZUMAB (420 MG) PRIOR TO SAE ONSET: 16/JUL/20
     Route: 042
     Dates: start: 20210409
  9. PERTUZUMAB [Concomitant]
     Active Substance: PERTUZUMAB
     Dosage: EVERY 3 WEEKS, DATE OF MOST RECENT DOSE OF PERTUZUMAB (420 MG) PRIOR TO SAE ONSET: 16/JUL/2021 420 M
     Route: 042
  10. PARACETAMOL AND IBUPROFEN [Concomitant]
     Indication: Pain
     Dosage: UNK
     Dates: start: 20210809, end: 20210812

REACTIONS (2)
  - Renal failure [Recovered/Resolved]
  - Underdose [Unknown]

NARRATIVE: CASE EVENT DATE: 20210812
